FAERS Safety Report 7251850-8 (Version None)
Quarter: 2011Q1

REPORT INFORMATION
  Report Type: 
  Country: None (occurrence: None)
  Receive Date: 20110128
  Receipt Date: 20100111
  Transmission Date: 20110831
  Serious: No
  Sender: FDA-Public Use
  Company Number: US-ABBOTT-10P-163-0618377-00

PATIENT
  Sex: Male

DRUGS (2)
  1. AMOXICILLIN [Concomitant]
     Indication: PROPHYLAXIS
     Dosage: 2000MG DAILY
  2. HUMIRA [Suspect]
     Indication: ANKYLOSING SPONDYLITIS
     Dates: start: 20090915

REACTIONS (5)
  - UPPER RESPIRATORY TRACT CONGESTION [None]
  - RED BLOOD CELL SEDIMENTATION RATE INCREASED [None]
  - TOOTH DISORDER [None]
  - ANKYLOSING SPONDYLITIS [None]
  - SPUTUM DISCOLOURED [None]
